FAERS Safety Report 6179007-2 (Version None)
Quarter: 2009Q2

REPORT INFORMATION
  Report Type: 
  Country: None (occurrence: None)
  Receive Date: 20090505
  Receipt Date: 20090428
  Transmission Date: 20091009
  Serious: Yes (Hospitalization)
  Sender: FDA-Public Use
  Company Number: US-JNJFOC-20090406943

PATIENT
  Sex: Male
  Weight: 102.97 kg

DRUGS (11)
  1. FENTANYL TRANSDERMAL SYSTEM [Suspect]
     Route: 062
  2. FENTANYL TRANSDERMAL SYSTEM [Suspect]
     Route: 062
  3. FENTANYL TRANSDERMAL SYSTEM [Suspect]
     Indication: LUNG NEOPLASM MALIGNANT
     Route: 062
  4. MORPHINE [Concomitant]
     Indication: PAIN
     Dosage: 1-2 AS NEEDED
     Route: 048
  5. LONOX [Concomitant]
     Indication: DIARRHOEA
     Route: 048
  6. SENOKOT [Concomitant]
     Indication: DIARRHOEA
     Route: 048
  7. AMBIEN [Concomitant]
     Indication: SLEEP DISORDER
     Route: 048
  8. POTASSIUM CHLORIDE [Concomitant]
     Indication: BLOOD POTASSIUM DECREASED
     Route: 048
  9. BENADRYL [Concomitant]
     Indication: SLEEP DISORDER
     Dosage: AT BED TIME
     Route: 048
  10. GEMZAR [Concomitant]
     Indication: NEOPLASM MALIGNANT
     Dosage: EVERY TUES TIMES 2 WEEKS/1 WEEK OFF
     Route: 048
  11. CARBOPLATIN [Concomitant]
     Indication: CHEMOTHERAPY
     Dosage: EVERY TUES TIMES 2 WEEKS/1 WEEK OFF
     Route: 048

REACTIONS (4)
  - DRUG PRESCRIBING ERROR [None]
  - FATIGUE [None]
  - PULMONARY THROMBOSIS [None]
  - WRONG TECHNIQUE IN DRUG USAGE PROCESS [None]
